FAERS Safety Report 18537718 (Version 3)
Quarter: 2021Q1

REPORT INFORMATION
  Report Type: Spontaneous
  Country: NL (occurrence: NL)
  Receive Date: 20201124
  Receipt Date: 20210122
  Transmission Date: 20210419
  Serious: Yes (Other)
  Sender: FDA-Public Use
  Company Number: NL-REGENERON PHARMACEUTICALS, INC.-2020-90056

PATIENT

DRUGS (1)
  1. EYLEA [Suspect]
     Active Substance: AFLIBERCEPT
     Indication: PRODUCT USED FOR UNKNOWN INDICATION
     Dosage: UNK, EYE UNK; TOTAL NUMBER OF DOSES UNK; LAST DOSE PRIOR TO EVENT UNK
     Route: 031

REACTIONS (3)
  - Device use issue [Unknown]
  - Blindness transient [Recovered/Resolved]
  - Incorrect dose administered [Unknown]
